FAERS Safety Report 7104333-X (Version None)
Quarter: 2010Q4

REPORT INFORMATION
  Report Type: 
  Country: None (occurrence: None)
  Receive Date: 20101115
  Receipt Date: 20100625
  Transmission Date: 20110411
  Serious: No
  Sender: FDA-Public Use
  Company Number: US-ALLERGAN-1008393US

PATIENT
  Sex: Female

DRUGS (2)
  1. BOTOXA? [Suspect]
     Indication: THORACIC OUTLET SYNDROME
     Dosage: UNK
     Route: 030
     Dates: start: 20100618, end: 20100618
  2. BOTOXA? [Suspect]
     Indication: PAIN

REACTIONS (1)
  - PAIN [None]
